FAERS Safety Report 17445434 (Version 1)
Quarter: 2020Q1

REPORT INFORMATION
  Report Type: Spontaneous
  Country: FR (occurrence: FR)
  Receive Date: 20200221
  Receipt Date: 20200221
  Transmission Date: 20200409
  Serious: Yes (Hospitalization)
  Sender: FDA-Public Use
  Company Number: NVSC2020FR047561

PATIENT
  Age: 55 Year
  Sex: Female

DRUGS (1)
  1. VOTRIENT [Suspect]
     Active Substance: PAZOPANIB HYDROCHLORIDE
     Indication: SARCOMA
     Dosage: 800 MG, QD (AROUND-JAN-2020)
     Route: 065
     Dates: start: 202001

REACTIONS (3)
  - Vena cava thrombosis [Unknown]
  - Fatigue [Unknown]
  - Pelvic abscess [Unknown]
